FAERS Safety Report 4976135-1 (Version None)
Quarter: 2006Q2

REPORT INFORMATION
  Report Type: 
  Country: None (occurrence: None)
  Receive Date: 20060411
  Receipt Date: 20060410
  Transmission Date: 20061013
  Serious: Yes (Death)
  Sender: FDA-Public Use
  Company Number: 2006S1000841

PATIENT
  Age: 74 Year
  Sex: Male

DRUGS (1)
  1. CLOZAPINE [Suspect]
     Dosage: 37.5 MG; QD; ORAL
     Route: 048
     Dates: start: 20040901, end: 20051201

REACTIONS (1)
  - ANAEMIA OF MALIGNANT DISEASE [None]
